FAERS Safety Report 16144384 (Version 2)
Quarter: 2021Q4

REPORT INFORMATION
  Report Type: Spontaneous
  Country: US (occurrence: US)
  Receive Date: 20190401
  Receipt Date: 20211126
  Transmission Date: 20220303
  Serious: Yes (Other)
  Sender: FDA-Public Use
  Company Number: US-PURDUE-USA-2019-0145694

PATIENT
  Age: 36 Year
  Sex: Female
  Weight: 68.27 kg

DRUGS (2)
  1. MS CONTIN [Suspect]
     Active Substance: MORPHINE SULFATE
     Indication: Product used for unknown indication
     Dosage: UNKNOWN
     Route: 048
  2. BUPRENORPHINE [Suspect]
     Active Substance: BUPRENORPHINE
     Indication: Drug dependence
     Dosage: 8 MG, TID
     Route: 060
     Dates: start: 20190114

REACTIONS (7)
  - Overdose [Unknown]
  - Drug dependence [Unknown]
  - Tremor [Unknown]
  - Anxiety [Unknown]
  - Nausea [Unknown]
  - Pain [Unknown]
  - Emotional distress [Unknown]

NARRATIVE: CASE EVENT DATE: 20190114
